FAERS Safety Report 7411753-2 (Version None)
Quarter: 2011Q2

REPORT INFORMATION
  Report Type: 
  Country: None (occurrence: None)
  Receive Date: 20110413
  Receipt Date: 20101215
  Transmission Date: 20111010
  Serious: Yes (Life-Threatening)
  Sender: FDA-Public Use
  Company Number: US-BRISTOL-MYERS SQUIBB COMPANY-15445588

PATIENT
  Sex: Male

DRUGS (3)
  1. BENADRYL [Concomitant]
  2. ERBITUX [Suspect]
     Indication: HEAD AND NECK CANCER
     Dosage: DF=LIQUID
     Route: 042
     Dates: start: 20101116, end: 20101116
  3. ACETAMINOPHEN [Concomitant]

REACTIONS (7)
  - LOSS OF CONSCIOUSNESS [None]
  - CONVULSION [None]
  - BLOOD PRESSURE IMMEASURABLE [None]
  - HYPOVENTILATION [None]
  - COUGH [None]
  - OXYGEN SATURATION IMMEASURABLE [None]
  - DROOLING [None]
